FAERS Safety Report 20434873 (Version 5)
Quarter: 2022Q1

REPORT INFORMATION
  Report Type: Report from Study
  Country: US (occurrence: US)
  Receive Date: 20220206
  Receipt Date: 20220329
  Transmission Date: 20220423
  Serious: Yes (Hospitalization, Other)
  Sender: FDA-Public Use
  Company Number: US-NOVARTISTESTPH-NVSC2022US024888

PATIENT
  Age: 25 Year
  Sex: Female

DRUGS (2)
  1. COSENTYX [Suspect]
     Active Substance: SECUKINUMAB
     Indication: Ankylosing spondylitis
     Dosage: 150 MG, QW (AM)
     Route: 058
     Dates: start: 20220203
  2. COSENTYX [Suspect]
     Active Substance: SECUKINUMAB
     Dosage: UNK UNK, QOD (AFTERNOON)
     Route: 065
     Dates: start: 20220310

REACTIONS (15)
  - Hypersensitivity [Unknown]
  - Sepsis [Unknown]
  - Injection site reaction [Unknown]
  - Chest discomfort [Unknown]
  - Oedema peripheral [Unknown]
  - Therapeutic response unexpected [Unknown]
  - Costochondritis [Unknown]
  - Condition aggravated [Unknown]
  - Amnesia [Unknown]
  - Dizziness [Unknown]
  - Pyrexia [Unknown]
  - Night sweats [Unknown]
  - Chills [Unknown]
  - Hypotension [Unknown]
  - Heart rate increased [Unknown]

NARRATIVE: CASE EVENT DATE: 20220203
